FAERS Safety Report 15418685 (Version 1)
Quarter: 2018Q3

REPORT INFORMATION
  Report Type: Spontaneous
  Country: US (occurrence: US)
  Receive Date: 20180924
  Receipt Date: 20180924
  Transmission Date: 20181010
  Serious: No
  Sender: FDA-Public Use
  Company Number: US-SA-2018SA262879

PATIENT
  Age: 14 Year
  Sex: Male
  Weight: 52 kg

DRUGS (13)
  1. NORMAL SALINE [Concomitant]
     Active Substance: SODIUM CHLORIDE
     Dosage: 0.9 %, UNK
     Route: 042
     Dates: start: 20180524
  2. EPINEPHRINE. [Concomitant]
     Active Substance: EPINEPHRINE
     Indication: ANAPHYLACTIC REACTION
     Dosage: 0.8 MG, PRN
     Route: 030
     Dates: start: 20180524
  3. HYDROXYZINE [Concomitant]
     Active Substance: HYDROXYZINE HYDROCHLORIDE
     Indication: PREMEDICATION
     Dosage: 10 MG, PRN
     Route: 048
     Dates: start: 20180524
  4. CLARITIN [LORATADINE] [Concomitant]
     Dosage: 1 DF, QD
     Route: 048
     Dates: start: 20131022
  5. SOLU?MEDROL [Concomitant]
     Active Substance: METHYLPREDNISOLONE SODIUM SUCCINATE
     Indication: ANAPHYLACTIC REACTION
     Dosage: 40 MG/ML, PRN
     Route: 042
     Dates: start: 20180524
  6. FABRAZYME [Suspect]
     Active Substance: AGALSIDASE BETA
     Indication: FABRY^S DISEASE
     Dosage: 50 MG, QOW
     Route: 041
  7. ACETAMINOPHEN. [Concomitant]
     Active Substance: ACETAMINOPHEN
     Indication: PREMEDICATION
     Dosage: 240 MG, UNK
     Route: 042
     Dates: start: 20180524
  8. SODIUM CHLORIDE. [Concomitant]
     Active Substance: SODIUM CHLORIDE
     Dosage: 0.9 %, UNK
     Route: 042
     Dates: start: 20180524
  9. LMX [LIDOCAINE] [Concomitant]
     Indication: PREMEDICATION
     Dosage: 4 %, UNK
     Route: 061
     Dates: start: 20180524
  10. CARBAMAZEPINE. [Concomitant]
     Active Substance: CARBAMAZEPINE
     Dosage: 1.5 DF, BID
     Route: 048
     Dates: start: 20180524
  11. NASONEX [Concomitant]
     Active Substance: MOMETASONE FUROATE
     Dosage: 2 DF, UNK
     Route: 055
     Dates: start: 20131022
  12. HEPARIN [Concomitant]
     Active Substance: HEPARIN SODIUM
     Dosage: UNK UNK, PRN
     Route: 065
     Dates: start: 20180524
  13. METHYLPHENIDATE. [Concomitant]
     Active Substance: METHYLPHENIDATE
     Dosage: 1 DF, QD
     Route: 048
     Dates: start: 20170401

REACTIONS (3)
  - Infusion site swelling [Unknown]
  - Infusion site pain [Unknown]
  - Device issue [Unknown]
